FAERS Safety Report 19816476 (Version 1)
Quarter: 2021Q3

REPORT INFORMATION
  Report Type: Not Available
  Country: SG (occurrence: SG)
  Receive Date: 20210910
  Receipt Date: 20210910
  Transmission Date: 20211014
  Serious: Yes (Death, Hospitalization, Other)
  Sender: FDA-Public Use
  Company Number: SG-AKORN-171025

PATIENT
  Age: 67 Year
  Sex: Male

DRUGS (1)
  1. FERROUS SULFATE ELIXIR [Suspect]
     Active Substance: FERROUS SULFATE

REACTIONS (12)
  - Beta haemolytic streptococcal infection [Fatal]
  - Septic pulmonary embolism [Fatal]
  - Respiratory failure [Fatal]
  - Septic shock [Fatal]
  - Intracardiac thrombus [Fatal]
  - Troponin I increased [Fatal]
  - Interventricular septum rupture [Fatal]
  - Pneumonia [Fatal]
  - Myocardial infarction [Fatal]
  - Leukocytosis [Fatal]
  - Infection [Fatal]
  - Angioplasty [Fatal]
